FAERS Safety Report 7769696-0 (Version None)
Quarter: 2011Q3

REPORT INFORMATION
  Report Type: 
  Country: None (occurrence: None)
  Receive Date: 20110922
  Receipt Date: 20100412
  Transmission Date: 20111222
  Serious: Yes (Other)
  Sender: FDA-Public Use
  Company Number: US-ASTRAZENECA-2009SE13339

PATIENT
  Age: 30 Year
  Sex: Male
  Weight: 114.3 kg

DRUGS (6)
  1. SEROQUEL [Suspect]
     Route: 048
     Dates: start: 19990722
  2. ZYPREXA [Concomitant]
     Indication: NERVOUSNESS
     Dosage: 10 MG-20 MG
     Dates: start: 19990722
  3. HALDOL [Concomitant]
     Indication: ANXIETY
     Dates: start: 19991021
  4. COGENTIN [Concomitant]
     Indication: TREMOR
     Dates: start: 19991021
  5. BENADRYL [Concomitant]
     Dates: start: 19991021
  6. ASPIRIN [Concomitant]
     Dosage: PM
     Dates: start: 19990722

REACTIONS (2)
  - TYPE 2 DIABETES MELLITUS [None]
  - DIABETIC KETOACIDOSIS [None]
